FAERS Safety Report 6287612-8 (Version None)
Quarter: 2009Q3

REPORT INFORMATION
  Report Type: 
  Country: None (occurrence: None)
  Receive Date: 20090727
  Receipt Date: 20090727
  Transmission Date: 20100115
  Serious: Yes (Other)
  Sender: FDA-Public Use
  Company Number: None

PATIENT
  Sex: Female
  Weight: 65.318 kg

DRUGS (4)
  1. LEVAQUIN [Suspect]
     Indication: BRONCHITIS
     Dosage: 750 MG 1 A DAY
     Dates: start: 20090710
  2. LEVAQUIN [Suspect]
     Indication: PNEUMONIA
     Dosage: 750 MG 1 A DAY
     Dates: start: 20090710
  3. LEVAQUIN [Suspect]
     Indication: BRONCHITIS
     Dosage: 750 MG 1 A DAY
     Dates: start: 20090711
  4. LEVAQUIN [Suspect]
     Indication: PNEUMONIA
     Dosage: 750 MG 1 A DAY
     Dates: start: 20090711

REACTIONS (5)
  - HYPOAESTHESIA [None]
  - MUSCULAR WEAKNESS [None]
  - PARAESTHESIA [None]
  - RASH [None]
  - RASH ERYTHEMATOUS [None]
